FAERS Safety Report 5114844-4 (Version None)
Quarter: 2006Q3

REPORT INFORMATION
  Report Type: 
  Country: None (occurrence: None)
  Receive Date: 20060926
  Receipt Date: 20060727
  Transmission Date: 20061208
  Serious: Yes (Other)
  Sender: FDA-Public Use
  Company Number: DE-BAYER-200611007BVD

PATIENT
  Age: 42 Year
  Sex: Male
  Weight: 160 kg

DRUGS (1)
  1. AVELOX [Suspect]
     Indication: PNEUMONIA ASPIRATION
     Route: 065
     Dates: start: 20060713, end: 20060724

REACTIONS (1)
  - RHABDOMYOLYSIS [None]
